FAERS Safety Report 7354068-3 (Version None)
Quarter: 2011Q1

REPORT INFORMATION
  Report Type: 
  Country: None (occurrence: None)
  Receive Date: 20110315
  Receipt Date: 20110311
  Transmission Date: 20110831
  Serious: Yes (Other)
  Sender: FDA-Public Use
  Company Number: GB-B.I. PHARMACEUTICALS,INC./RIDGEFIELD-2011-BP-05340BP

PATIENT
  Sex: Female

DRUGS (5)
  1. REYATAZ [Concomitant]
     Indication: DRUG EXPOSURE DURING PREGNANCY
     Dosage: 300 MG
     Route: 064
     Dates: start: 20101207
  2. NORVIR [Concomitant]
     Indication: DRUG EXPOSURE DURING PREGNANCY
     Dosage: 100 MG
     Route: 064
     Dates: start: 20101207
  3. VIRAMUNE [Suspect]
     Indication: DRUG EXPOSURE DURING PREGNANCY
     Dosage: 400 MG
     Route: 064
     Dates: start: 20110218, end: 20110219
  4. TRUVADA [Concomitant]
     Indication: DRUG EXPOSURE DURING PREGNANCY
     Route: 064
     Dates: start: 20101207
  5. ISENTRESS [Concomitant]
     Indication: DRUG EXPOSURE DURING PREGNANCY
     Dosage: 800 MG
     Route: 064
     Dates: start: 20110218, end: 20110219

REACTIONS (1)
  - SMALL FOR DATES BABY [None]
